FAERS Safety Report 7723066-X (Version None)
Quarter: 2011Q3

REPORT INFORMATION
  Report Type: 
  Country: None (occurrence: None)
  Receive Date: 20110901
  Receipt Date: 20110823
  Transmission Date: 20111222
  Serious: Yes (Other)
  Sender: FDA-Public Use
  Company Number: FR-PFIZER INC-2007023948

PATIENT
  Sex: Female

DRUGS (7)
  1. PREDNISOLONE [Concomitant]
     Dates: start: 20060801
  2. DESLORATADINE [Concomitant]
     Dates: start: 20060801
  3. SULFASALAZINE [Suspect]
     Indication: RHEUMATOID ARTHRITIS
     Dates: start: 20060401
  4. SULFASALAZINE [Suspect]
     Indication: NECK PAIN
  5. SULFASALAZINE [Suspect]
     Indication: BACK PAIN
     Dosage: 3 TABLETS DAILY
     Dates: start: 20060802
  6. SULFASALAZINE [Suspect]
     Indication: PAIN
     Dosage: UNK
     Dates: start: 20060618
  7. CELESTAMINE TAB [Concomitant]
     Dates: start: 20070108

REACTIONS (12)
  - ANGIOEDEMA [None]
  - VAGINAL STRICTURE [None]
  - VISUAL ACUITY REDUCED [None]
  - HEADACHE [None]
  - DIPLOPIA [None]
  - STRABISMUS [None]
  - EYE PAIN [None]
  - INTENTIONAL DRUG MISUSE [None]
  - HYPERSENSITIVITY [None]
  - ASTHMA [None]
  - UTERINE HAEMORRHAGE [None]
  - MIGRAINE [None]
